FAERS Safety Report 8574345-8 (Version None)
Quarter: 2012Q3

REPORT INFORMATION
  Report Type: 
  Country: None (occurrence: None)
  Receive Date: 20120806
  Receipt Date: 20120720
  Transmission Date: 20120928
  Serious: Yes (Other)
  Sender: FDA-Public Use
  Company Number: CHPA2012US016540

PATIENT
  Age: 28 Year
  Sex: Male

DRUGS (1)
  1. EXCEDRIN EXTRA STRENGTH TABLETS [Suspect]
     Indication: PAIN
     Dosage: 10 DF, QD
     Route: 048
     Dates: start: 19960101

REACTIONS (7)
  - DRUG DEPENDENCE [None]
  - BACK PAIN [None]
  - METASTASIS [None]
  - GASTROINTESTINAL DISORDER [None]
  - TESTIS CANCER [None]
  - OVERDOSE [None]
  - INCORRECT DRUG ADMINISTRATION DURATION [None]
